FAERS Safety Report 5995500-7 (Version None)
Quarter: 2008Q4

REPORT INFORMATION
  Report Type: 
  Country: None (occurrence: None)
  Receive Date: 20081212
  Receipt Date: 20080703
  Transmission Date: 20090506
  Serious: No
  Sender: FDA-Public Use
  Company Number: US-AMGEN-KDL289072

PATIENT
  Sex: Female

DRUGS (6)
  1. ENBREL [Suspect]
     Indication: RHEUMATOID ARTHRITIS
     Route: 058
     Dates: start: 20080417
  2. METHOTREXATE [Concomitant]
     Route: 058
  3. CYCLOBENZAPRINE HCL [Concomitant]
  4. ALENDRONATE SODIUM [Concomitant]
  5. VITAMIN D [Concomitant]
  6. FOLIC ACID [Concomitant]

REACTIONS (4)
  - INJECTION SITE RASH [None]
  - INJECTION SITE REACTION [None]
  - INJECTION SITE URTICARIA [None]
  - LATEX ALLERGY [None]
